FAERS Safety Report 13784798 (Version 1)
Quarter: 2017Q3

REPORT INFORMATION
  Report Type: Spontaneous
  Country: EG (occurrence: EG)
  Receive Date: 20170725
  Receipt Date: 20170725
  Transmission Date: 20171127
  Serious: Yes (Hospitalization, Other)
  Sender: FDA-Public Use
  Company Number: EG-NOVOPROD-555119

PATIENT
  Age: 45 Year
  Sex: Female
  Weight: 100 kg

DRUGS (3)
  1. MIXTARD HUMAN 70/30 [Suspect]
     Active Substance: INSULIN HUMAN
     Indication: TYPE 1 DIABETES MELLITUS
     Dosage: 60 U, QD (40U /BREAKFAST AND 20 U/DINNER)
     Route: 058
  2. MIXTARD HUMAN 70/30 [Suspect]
     Active Substance: INSULIN HUMAN
     Dosage: 40 U, QD (30 U/BREAKFAST AND 10 U/ DINNER)
     Route: 058
  3. MIXTARD 30 HM PENFILL [Suspect]
     Active Substance: INSULIN HUMAN
     Indication: TYPE 1 DIABETES MELLITUS
     Dosage: 30 U, QD (20 U/MORNING AND 10 U/ NIGHT)
     Route: 058

REACTIONS (3)
  - Diabetic foot [Not Recovered/Not Resolved]
  - Hypoglycaemic coma [Recovered/Resolved]
  - Blood glucose increased [Recovered/Resolved]

NARRATIVE: CASE EVENT DATE: 2009
